FAERS Safety Report 6428743-9 (Version None)
Quarter: 2009Q4

REPORT INFORMATION
  Report Type: 
  Country: None (occurrence: None)
  Receive Date: 20091105
  Receipt Date: 20091103
  Transmission Date: 20100525
  Serious: Yes (Other)
  Sender: FDA-Public Use
  Company Number: DE-BRISTOL-MYERS SQUIBB COMPANY-14761910

PATIENT
  Age: 73 Year
  Sex: Male

DRUGS (3)
  1. SPRYCEL [Suspect]
     Indication: CHRONIC MYELOID LEUKAEMIA
     Dosage: INTERRUPTED ON 02SEP09 RESTARTED ON 25SEP09 AGAIN INTEPD ON 29OCT09
     Route: 048
     Dates: start: 20090706
  2. LEVOTHYROXINE SODIUM [Concomitant]
  3. GABAPENTIN [Concomitant]

REACTIONS (6)
  - COLITIS [None]
  - GASTRITIS [None]
  - PLATELET COUNT DECREASED [None]
  - PRESYNCOPE [None]
  - PROCTITIS [None]
  - WEIGHT DECREASED [None]
